FAERS Safety Report 6701252-5 (Version None)
Quarter: 2010Q2

REPORT INFORMATION
  Report Type: 
  Country: None (occurrence: None)
  Receive Date: 20100427
  Receipt Date: 20100409
  Transmission Date: 20101027
  Serious: Yes (Other)
  Sender: FDA-Public Use
  Company Number: 007066

PATIENT
  Age: 48 Year
  Sex: Female

DRUGS (1)
  1. PEGAPTANIB SODIUM (PEGAPTANIB SODIUM) FOR INJECTION [Suspect]

REACTIONS (1)
  - RETINAL DETACHMENT [None]
